FAERS Safety Report 6725528-0 (Version None)
Quarter: 2010Q2

REPORT INFORMATION
  Report Type: 
  Country: None (occurrence: None)
  Receive Date: 20100514
  Receipt Date: 20100505
  Transmission Date: 20101027
  Serious: Yes (Other)
  Sender: FDA-Public Use
  Company Number: CA-JNJFOC-20100404290

PATIENT
  Sex: Male
  Weight: 86.18 kg

DRUGS (10)
  1. INVEGA [Suspect]
     Indication: SCHIZOPHRENIA, PARANOID TYPE
     Route: 048
     Dates: start: 20100414, end: 20100415
  2. WELLBUTRIN XL [Concomitant]
     Indication: SMOKING CESSATION THERAPY
     Route: 065
  3. WELLBUTRIN XL [Concomitant]
     Indication: DEPRESSION
     Route: 065
  4. CLONAZEPAM [Concomitant]
     Indication: ANXIETY
  5. ZANTAC [Concomitant]
     Indication: GASTROOESOPHAGEAL REFLUX DISEASE
  6. SPIRIVA [Concomitant]
     Indication: CHRONIC OBSTRUCTIVE PULMONARY DISEASE
  7. ADVAIR DISKUS 100/50 [Concomitant]
     Indication: CHRONIC OBSTRUCTIVE PULMONARY DISEASE
  8. VENTOLIN [Concomitant]
     Indication: CHRONIC OBSTRUCTIVE PULMONARY DISEASE
  9. SINGULAIR [Concomitant]
     Indication: CHRONIC OBSTRUCTIVE PULMONARY DISEASE
  10. RISPERIDONE [Concomitant]
     Indication: SCHIZOPHRENIA
     Route: 048

REACTIONS (9)
  - CHEST DISCOMFORT [None]
  - CHEST PAIN [None]
  - COLLAPSE OF LUNG [None]
  - CONTUSION [None]
  - HYPERSENSITIVITY [None]
  - LUNG INFECTION [None]
  - SPUTUM ABNORMAL [None]
  - SWOLLEN TONGUE [None]
  - TONGUE BLISTERING [None]
